FAERS Safety Report 7992066-7 (Version None)
Quarter: 2011Q4

REPORT INFORMATION
  Report Type: 
  Country: None (occurrence: None)
  Receive Date: 20111219
  Receipt Date: 20110809
  Transmission Date: 20120403
  Serious: No
  Sender: FDA-Public Use
  Company Number: US-ASTRAZENECA-2011SE47497

PATIENT
  Age: 63 Year
  Sex: Female
  Weight: 83 kg

DRUGS (8)
  1. ASPIRIN [Concomitant]
     Indication: CARDIAC DISORDER
  2. CRESTOR [Suspect]
     Route: 048
     Dates: end: 20100101
  3. METOPROLOL [Concomitant]
     Indication: HYPERTENSION
  4. SYNTHROID [Concomitant]
     Indication: THYROID DISORDER
  5. FENOFIBRATE [Concomitant]
     Indication: BLOOD CHOLESTEROL ABNORMAL
  6. IMLODAPINE [Concomitant]
     Indication: HYPERTENSION
  7. LISINOPRIL [Concomitant]
     Indication: BLOOD PRESSURE ABNORMAL
  8. NOVALOG [Concomitant]
     Indication: DIABETES MELLITUS

REACTIONS (1)
  - GAIT DISTURBANCE [None]
